FAERS Safety Report 8102245-6 (Version None)
Quarter: 2012Q1

REPORT INFORMATION
  Report Type: 
  Country: None (occurrence: None)
  Receive Date: 20120201
  Receipt Date: 20120125
  Transmission Date: 20120608
  Serious: Yes (Hospitalization)
  Sender: FDA-Public Use
  Company Number: US-AMGEN-USASP2012005229

PATIENT
  Age: 48 Year
  Sex: Female

DRUGS (1)
  1. ENBREL [Suspect]
     Indication: RHEUMATOID ARTHRITIS
     Dosage: 50 MG, QWK
     Dates: start: 20090415, end: 20111229

REACTIONS (5)
  - KNEE ARTHROPLASTY [None]
  - JOINT CREPITATION [None]
  - ARTHRALGIA [None]
  - KNEE DEFORMITY [None]
  - OEDEMA PERIPHERAL [None]
